FAERS Safety Report 9570183 (Version 1)
Quarter: 2013Q3

REPORT INFORMATION
  Report Type: Spontaneous
  Country: US (occurrence: None)
  Receive Date: 20130926
  Receipt Date: 20130926
  Transmission Date: 20140515
  Serious: Yes (Disabling)
  Sender: FDA-Public Use
  Company Number: None

PATIENT
  Age: 62 Year
  Sex: Male
  Weight: 120.2 kg

DRUGS (1)
  1. CIPROFLOXACIN [Suspect]
     Indication: SKIN ULCER
     Dosage: 1.5 TABS, TWICE DAILY, TAKEN BY MOUTH
     Route: 048
     Dates: start: 20130712, end: 20130722

REACTIONS (2)
  - Vertigo [None]
  - Dizziness [None]
